FAERS Safety Report 7668271-6 (Version None)
Quarter: 2011Q3

REPORT INFORMATION
  Report Type: 
  Country: None (occurrence: None)
  Receive Date: 20110808
  Receipt Date: 20110725
  Transmission Date: 20111222
  Serious: Yes (Life-Threatening, Hospitalization)
  Sender: FDA-Public Use
  Company Number: TW-MYLANLABS-2011S1015442

PATIENT
  Age: 44 Year
  Sex: Female

DRUGS (2)
  1. TRAZODONE HCL [Suspect]
     Indication: OVERDOSE
     Route: 065
  2. ZOTEPINE [Suspect]
     Indication: OVERDOSE
     Route: 065

REACTIONS (3)
  - OVERDOSE [None]
  - RESPIRATORY FAILURE [None]
  - ACUTE RESPIRATORY DISTRESS SYNDROME [None]
